FAERS Safety Report 7801828-8 (Version None)
Quarter: 2011Q4

REPORT INFORMATION
  Report Type: 
  Country: None (occurrence: None)
  Receive Date: 20111007
  Receipt Date: 20111005
  Transmission Date: 20120403
  Serious: Yes (Death, Other)
  Sender: FDA-Public Use
  Company Number: IN-PFIZER INC-2011237179

PATIENT
  Age: 45 Year
  Sex: Female

DRUGS (1)
  1. PIROXICAM [Suspect]
     Indication: PAIN
     Dosage: 0.1 ML, SINGLE
     Route: 023

REACTIONS (2)
  - ANAPHYLACTIC REACTION [None]
  - DEATH [None]
